FAERS Safety Report 24195349 (Version 1)
Quarter: 2024Q3

REPORT INFORMATION
  Report Type: Spontaneous
  Country: TH (occurrence: TH)
  Receive Date: 20240809
  Receipt Date: 20240809
  Transmission Date: 20241017
  Serious: Yes (Other)
  Sender: BAYER
  Company Number: TH-BAYER-2024A110686

PATIENT
  Age: 69 Year
  Sex: Female

DRUGS (1)
  1. FINERENONE [Suspect]
     Active Substance: FINERENONE

REACTIONS (3)
  - Urine albumin/creatinine ratio increased [None]
  - Hyperkalaemia [None]
  - Glomerular filtration rate decreased [None]
